FAERS Safety Report 6301045-7 (Version None)
Quarter: 2009Q3

REPORT INFORMATION
  Report Type: 
  Country: None (occurrence: None)
  Receive Date: 20090807
  Receipt Date: 20090729
  Transmission Date: 20100115
  Serious: Yes (Other)
  Sender: FDA-Public Use
  Company Number: DE-PFIZER INC-2009241734

PATIENT
  Age: 68 Year

DRUGS (2)
  1. VIAGRA [Suspect]
     Indication: ERECTILE DYSFUNCTION
     Dosage: 50 MG, AS NEEDED
     Route: 048
     Dates: start: 20090702
  2. VIAGRA [Suspect]
     Dosage: 25 MG, AS NEEDED
     Route: 048
     Dates: start: 20050101, end: 20090701

REACTIONS (1)
  - THROMBOPHLEBITIS SUPERFICIAL [None]
